FAERS Safety Report 12832092 (Version 9)
Quarter: 2017Q1

REPORT INFORMATION
  Report Type: Report from Study
  Country: DE (occurrence: DE)
  Receive Date: 20161010
  Receipt Date: 20170310
  Transmission Date: 20170428
  Serious: Yes (Hospitalization, Other)
  Sender: FDA-Public Use
  Company Number: PHHY2016DE125612

PATIENT
  Age: 61 Year
  Sex: Male
  Weight: 88 kg

DRUGS (23)
  1. TAFINLAR [Suspect]
     Active Substance: DABRAFENIB MESYLATE
     Indication: MALIGNANT MELANOMA
     Dosage: 150 MG, BID
     Route: 048
     Dates: start: 20160401, end: 20160423
  2. TRAMETINIB [Suspect]
     Active Substance: TRAMETINIB
     Dosage: UNK MG, QD
     Route: 048
     Dates: start: 20160505, end: 20160528
  3. JANUVIA [Concomitant]
     Active Substance: SITAGLIPTIN PHOSPHATE
     Indication: TYPE 2 DIABETES MELLITUS
     Dosage: 50 MG, BID
     Route: 048
     Dates: end: 2016
  4. VELMETIA (METFORMIN HYDROCHLORIDE/SITAGLIPTIN PHOSPHATE) [Concomitant]
     Indication: HYPERTENSION
     Dosage: 50 MG, QD
     Route: 048
     Dates: start: 20150101
  5. TRAMETINIB [Suspect]
     Active Substance: TRAMETINIB
     Indication: MALIGNANT MELANOMA
     Dosage: 2 MG, QD
     Route: 048
     Dates: start: 20160401, end: 20160423
  6. COBIMETINIB [Suspect]
     Active Substance: COBIMETINIB
     Dosage: 40 MG, QD
     Route: 048
     Dates: start: 20161208, end: 20161214
  7. TAFINLAR [Suspect]
     Active Substance: DABRAFENIB MESYLATE
     Dosage: UNK MG, BID
     Route: 048
     Dates: start: 20160424, end: 20160504
  8. TAFINLAR [Suspect]
     Active Substance: DABRAFENIB MESYLATE
     Dosage: 150 MG, BID
     Route: 048
     Dates: start: 20160530, end: 20160703
  9. TAFINLAR [Suspect]
     Active Substance: DABRAFENIB MESYLATE
     Dosage: 75 MG, BID
     Route: 048
     Dates: start: 20160704, end: 20160704
  10. TRAMETINIB [Suspect]
     Active Substance: TRAMETINIB
     Dosage: UNK MG, QD
     Route: 048
     Dates: start: 20160424, end: 20160504
  11. TRAMETINIB [Suspect]
     Active Substance: TRAMETINIB
     Dosage: UNK MG, QD
     Route: 048
     Dates: start: 20160530, end: 20160703
  12. COBIMETINIB [Suspect]
     Active Substance: COBIMETINIB
     Indication: MALIGNANT MELANOMA
     Dosage: 60 MG, QD
     Route: 048
     Dates: start: 20161024, end: 20161207
  13. METFORMIN [Concomitant]
     Active Substance: METFORMIN HYDROCHLORIDE
     Indication: TYPE 2 DIABETES MELLITUS
     Dosage: 1000 MG, BID
     Route: 048
     Dates: end: 2016
  14. VALSARTAN. [Concomitant]
     Active Substance: VALSARTAN
     Indication: HYPERTENSION
     Dosage: 80 MG, BID
     Route: 048
  15. PANTOPRAZOLE [Concomitant]
     Active Substance: PANTOPRAZOLE SODIUM
     Indication: PRODUCT USED FOR UNKNOWN INDICATION
     Dosage: 40 MG, QD
     Route: 048
     Dates: start: 20160530
  16. TAFINLAR [Suspect]
     Active Substance: DABRAFENIB MESYLATE
     Dosage: 75 MG, BID
     Route: 048
     Dates: start: 20160505, end: 20160528
  17. TAFINLAR [Suspect]
     Active Substance: DABRAFENIB MESYLATE
     Dosage: 75 MG, BID
     Route: 048
     Dates: start: 20160529, end: 20160529
  18. TRAMETINIB [Suspect]
     Active Substance: TRAMETINIB
     Dosage: 2 MG, QD
     Route: 048
     Dates: start: 20160529, end: 20160529
  19. TRAMETINIB [Suspect]
     Active Substance: TRAMETINIB
     Dosage: UNK MG, QD
     Route: 048
     Dates: start: 20160704, end: 20160704
  20. VEMURAFENIB [Suspect]
     Active Substance: VEMURAFENIB
     Indication: MALIGNANT MELANOMA
     Dosage: 960 MG, BID
     Route: 048
     Dates: start: 20161024, end: 20161207
  21. VEMURAFENIB [Suspect]
     Active Substance: VEMURAFENIB
     Dosage: 480 MG, BID
     Route: 048
     Dates: start: 20161208, end: 20161214
  22. AMLODIPINE [Concomitant]
     Active Substance: AMLODIPINE BESYLATE
     Indication: HYPERTENSION
     Dosage: 5 MG, UNK
     Route: 048
  23. RAMIPRIL. [Concomitant]
     Active Substance: RAMIPRIL
     Indication: HYPERTENSION
     Dosage: UNK, QD
     Route: 065
     Dates: start: 20160101

REACTIONS (24)
  - Pyrexia [Recovered/Resolved]
  - Thrombocytopenia [Recovered/Resolved]
  - Vomiting [Recovered/Resolved]
  - Vomiting [Recovered/Resolved]
  - Renal disorder [Recovered/Resolved]
  - Rash generalised [Unknown]
  - General physical health deterioration [Recovering/Resolving]
  - Malignant neoplasm progression [Unknown]
  - Nausea [Recovered/Resolved]
  - Dehydration [Unknown]
  - Vomiting [Recovered/Resolved]
  - Nausea [Recovered/Resolved]
  - Diarrhoea [Recovered/Resolved]
  - Pyrexia [Recovered/Resolved]
  - Pyrexia [Recovered/Resolved]
  - Hyperbilirubinaemia [Recovered/Resolved]
  - Hyponatraemia [Recovered/Resolved]
  - Hyponatraemia [Recovered/Resolved]
  - Local swelling [Unknown]
  - Pyrexia [Recovered/Resolved]
  - Cough [Recovered/Resolved]
  - Pain in extremity [Recovered/Resolved]
  - Asthenia [Recovered/Resolved]
  - Flank pain [Recovered/Resolved]

NARRATIVE: CASE EVENT DATE: 20160420
